FAERS Safety Report 9631214 (Version 1)
Quarter: 2013Q4

REPORT INFORMATION
  Report Type: Spontaneous
  Country: GB (occurrence: None)
  Receive Date: 20131015
  Receipt Date: 20131015
  Transmission Date: 20140711
  Serious: Yes (Hospitalization)
  Sender: FDA-Public Use
  Company Number: 2013-003201

PATIENT
  Sex: 0

DRUGS (1)
  1. ASACOL [Suspect]
     Route: 048

REACTIONS (2)
  - Small intestinal obstruction [None]
  - Dysphagia [None]
